FAERS Safety Report 4796312-2 (Version None)
Quarter: 2005Q4

REPORT INFORMATION
  Report Type: 
  Country: None (occurrence: None)
  Receive Date: 20051007
  Receipt Date: 20050923
  Transmission Date: 20060501
  Serious: Yes (Death)
  Sender: FDA-Public Use
  Company Number: 2005S1006673

PATIENT
  Age: 71 Year
  Sex: Female

DRUGS (13)
  1. CLOZAPINE [Suspect]
     Indication: PSYCHOTIC DISORDER
     Dosage: 12.5 MG;HS;PO
     Route: 048
     Dates: start: 20020501, end: 20050701
  2. BOTOX (ALLERGAN) [Suspect]
     Indication: TORTICOLLIS
     Dosage: IM
     Route: 030
     Dates: start: 20020201, end: 20050601
  3. FLUOXETINE [Concomitant]
  4. HYDROCHLORIDE [Concomitant]
  5. CARBIDOPA AND LEVODOPA [Concomitant]
  6. TRAMADOL HCL [Concomitant]
  7. MORPHINE [Concomitant]
  8. PANTOPRAZOLE [Concomitant]
  9. ESTROGEN NOS [Concomitant]
  10. OXYCODONE [Concomitant]
  11. TERAZOSIN HCL [Concomitant]
  12. CELECOXIB [Concomitant]
  13. PARACETAMOL [Concomitant]

REACTIONS (3)
  - OVERDOSE [None]
  - RESPIRATORY ARREST [None]
  - RESPIRATORY FAILURE [None]
